FAERS Safety Report 13456761 (Version 5)
Quarter: 2017Q2

REPORT INFORMATION
  Report Type: Spontaneous
  Country: JP (occurrence: JP)
  Receive Date: 20170418
  Receipt Date: 20170613
  Transmission Date: 20170830
  Serious: Yes (Hospitalization, Other)
  Sender: FDA-Public Use
  Company Number: JP-PFM-2017-02744

PATIENT
  Age: 4 Month
  Sex: Female

DRUGS (6)
  1. HEMANGIOL [Suspect]
     Active Substance: PROPRANOLOL HYDROCHLORIDE
     Dosage: 3 MG/KG/DAY (2TIMES A DAY)
     Route: 048
     Dates: start: 20170225, end: 20170225
  2. HEMANGIOL [Suspect]
     Active Substance: PROPRANOLOL HYDROCHLORIDE
     Dosage: 2 MG/KG/DAY (2TIMES A DAY)
     Route: 048
     Dates: start: 20170226, end: 20170301
  3. HEMANGIOL [Suspect]
     Active Substance: PROPRANOLOL HYDROCHLORIDE
     Dosage: 2 MG/KG/DAY  (2TIMES A DAY)
     Route: 048
     Dates: start: 20170224, end: 20170224
  4. HEMANGIOL [Suspect]
     Active Substance: PROPRANOLOL HYDROCHLORIDE
     Dosage: 3 MG/KG/DAY (2TIMES A DAY)
     Route: 048
     Dates: start: 20170427
  5. HEMANGIOL [Suspect]
     Active Substance: PROPRANOLOL HYDROCHLORIDE
     Indication: INFANTILE HAEMANGIOMA
     Dosage: 3MG/KG/DAY (2TIMES A DAY)
     Route: 048
     Dates: start: 20170222, end: 20170223
  6. HEMANGIOL [Suspect]
     Active Substance: PROPRANOLOL HYDROCHLORIDE
     Dosage: 3 MG/KG/DAY (2TIMES A DAY)
     Route: 048
     Dates: start: 20170309, end: 20170329

REACTIONS (3)
  - Anaphylactic reaction [Recovered/Resolved]
  - Off label use [Unknown]
  - Intentional product use issue [Unknown]

NARRATIVE: CASE EVENT DATE: 20170329
